FAERS Safety Report 4998511-3 (Version None)
Quarter: 2006Q2

REPORT INFORMATION
  Report Type: 
  Country: None (occurrence: None)
  Receive Date: 20060510
  Receipt Date: 20060417
  Transmission Date: 20061013
  Serious: Yes (Hospitalization)
  Sender: FDA-Public Use
  Company Number: JP-NOVOPROD-252520

PATIENT
  Age: 51 Year
  Sex: Female
  Weight: 60 kg

DRUGS (6)
  1. NORDITROPIN SIMPLEXX [Suspect]
     Indication: GROWTH HORMONE DEFICIENCY
     Dosage: .1 MG, QD
     Route: 058
     Dates: start: 20051017
  2. LEVOTHYROXINE SODIUM [Concomitant]
     Dosage: 100 UG, QD
     Route: 048
     Dates: start: 20030528
  3. LACTOMIN [Concomitant]
     Dosage: 3 G, QD
     Route: 048
     Dates: start: 20060411
  4. MAGNESIUM OXIDE [Concomitant]
     Dosage: 1.5 G, QD
     Route: 048
     Dates: start: 20060411
  5. FOSFOMYCIN CALCIUM [Concomitant]
     Dosage: 1500 MG, QD
     Route: 048
     Dates: start: 20060411
  6. LOXOPROFEN SODIUM [Concomitant]
     Dosage: 180 MG, QD
     Route: 048
     Dates: start: 20060411

REACTIONS (2)
  - BACK PAIN [None]
  - PYELONEPHRITIS [None]
